FAERS Safety Report 4317510-8 (Version None)
Quarter: 2004Q1

REPORT INFORMATION
  Report Type: 
  Country: None (occurrence: None)
  Receive Date: 20040312
  Receipt Date: 20040303
  Transmission Date: 20041129
  Serious: Yes (Hospitalization, Other)
  Sender: FDA-Public Use
  Company Number: 2004001757

PATIENT
  Age: 14 Year
  Sex: Female

DRUGS (7)
  1. NEURONTIN [Suspect]
     Indication: PAIN IN EXTREMITY
     Dosage: 1500 MG (TID), ORAL
     Route: 048
     Dates: start: 20031214
  2. NEURONTIN [Suspect]
     Indication: REFLEX SYMPATHETIC DYSTROPHY
     Dosage: 1500 MG (TID), ORAL
     Route: 048
     Dates: start: 20031214
  3. CORTICOSTEROID NOS (CORTICOSTEROID NOS) [Suspect]
     Indication: LABYRINTHITIS
     Dosage: (BOLUS)
     Dates: start: 20031201
  4. CODEINE PHOSPHATE AND ACETAMINOPHEN [Concomitant]
  5. AMITRIPTYLINE HYDROCHLORIDE (AQMITRIPTYLINE HYDROCHLORIDE) [Concomitant]
  6. MECLOZINE HYDROCHLORIDE (MECLOZINE HYDROCHLORIDE) [Concomitant]
  7. OXAPROZIN [Concomitant]

REACTIONS (9)
  - ALANINE AMINOTRANSFERASE INCREASED [None]
  - ASPARTATE AMINOTRANSFERASE INCREASED [None]
  - ELECTROENCEPHALOGRAM ABNORMAL [None]
  - ELECTROMYOGRAM ABNORMAL [None]
  - LABYRINTHITIS [None]
  - LIVER FUNCTION TEST ABNORMAL [None]
  - NERVOUS SYSTEM DISORDER [None]
  - RESPIRATORY ARREST [None]
  - VIRAL INFECTION [None]
